FAERS Safety Report 6904631-6 (Version None)
Quarter: 2010Q3

REPORT INFORMATION
  Report Type: 
  Country: None (occurrence: None)
  Receive Date: 20100804
  Receipt Date: 20090619
  Transmission Date: 20110219
  Serious: Yes (Other)
  Sender: FDA-Public Use
  Company Number: US-PFIZER INC-2009200005

PATIENT

DRUGS (3)
  1. LYRICA [Suspect]
     Indication: PARTIAL SEIZURES
  2. TOPAMAX [Concomitant]
     Dosage: 300 MG, 2X/DAY
  3. TEGRETOL [Concomitant]
     Dosage: 500 MG, 1X/DAY

REACTIONS (1)
  - CONVULSION [None]
